FAERS Safety Report 8859453 (Version 1)
Quarter: 2012Q4

REPORT INFORMATION
  Report Type: Spontaneous
  Country: US (occurrence: None)
  Receive Date: 20121023
  Receipt Date: 20121023
  Transmission Date: 20130627
  Serious: Yes (Other)
  Sender: FDA-Public Use
  Company Number: DSA_60271_2012

PATIENT
  Sex: Female

DRUGS (8)
  1. WELLBUTRIN [Suspect]
     Indication: PANIC ATTACK
     Dates: start: 2003, end: 2003
  2. WELLBUTRIN [Suspect]
     Indication: ANXIETY
     Dates: start: 2003, end: 2003
  3. CELEXA [Suspect]
     Indication: PANIC ATTACK
  4. CELEXA [Suspect]
     Indication: ANXIETY
  5. PROZAC [Suspect]
     Indication: PANIC ATTACK
     Dates: start: 2006, end: 2006
  6. PROZAC [Suspect]
     Indication: ANXIETY
     Dates: start: 2006, end: 2006
  7. LEXAPRO [Suspect]
     Indication: PANIC ATTACK
  8. LEXAPRO [Suspect]
     Indication: ANXIETY

REACTIONS (3)
  - Abortion spontaneous [None]
  - Drug ineffective [None]
  - Maternal drugs affecting foetus [None]
